FAERS Safety Report 6005565-4 (Version None)
Quarter: 2008Q4

REPORT INFORMATION
  Report Type: 
  Country: None (occurrence: None)
  Receive Date: 20081216
  Receipt Date: 20081216
  Transmission Date: 20090506
  Serious: Yes (Life-Threatening, Hospitalization)
  Sender: FDA-Public Use
  Company Number: None

PATIENT
  Age: 47 Year
  Sex: Male
  Weight: 95.2554 kg

DRUGS (1)
  1. SIMVASTATIN [Suspect]
     Indication: BLOOD CHOLESTEROL INCREASED
     Dosage: ONE PILL ONCE DAILY PO
     Route: 048
     Dates: start: 20081209, end: 20081209

REACTIONS (12)
  - ABDOMINAL PAIN UPPER [None]
  - ANXIETY [None]
  - BLOOD PRESSURE IMMEASURABLE [None]
  - CARDIAC ENZYMES INCREASED [None]
  - DRUG HYPERSENSITIVITY [None]
  - HYPERHIDROSIS [None]
  - INJURY [None]
  - NERVOUSNESS [None]
  - PRESYNCOPE [None]
  - SHOCK [None]
  - VISION BLURRED [None]
  - VISUAL IMPAIRMENT [None]
